FAERS Safety Report 21562035 (Version 1)
Quarter: 2022Q4

REPORT INFORMATION
  Report Type: Spontaneous
  Country: US (occurrence: None)
  Receive Date: 20221106
  Receipt Date: 20221106
  Transmission Date: 20230113
  Serious: Yes (Disabling)
  Sender: FDA-Public Use
  Company Number: None

PATIENT
  Age: 85 Year
  Sex: Male
  Weight: 72 kg

DRUGS (7)
  1. DIVALPROEX SODIUM DR [Suspect]
     Active Substance: DIVALPROEX SODIUM
     Indication: Cerebral haemorrhage
     Dates: start: 20220428, end: 20220530
  2. DIVALPROEX SODIUM DR [Suspect]
     Active Substance: DIVALPROEX SODIUM
     Indication: Postoperative care
  3. IMDUR [Concomitant]
     Active Substance: ISOSORBIDE MONONITRATE
  4. LIPITOR [Concomitant]
     Active Substance: ATORVASTATIN CALCIUM
  5. FLOMAX [Concomitant]
     Active Substance: TAMSULOSIN HYDROCHLORIDE
  6. GLUCOPHAGE [Concomitant]
     Active Substance: METFORMIN HYDROCHLORIDE
  7. antacids tums [Concomitant]

REACTIONS (11)
  - Hypoaesthesia [None]
  - Hypoaesthesia [None]
  - Hallucination, visual [None]
  - Nightmare [None]
  - Communication disorder [None]
  - Cognitive disorder [None]
  - Paralysis [None]
  - Aggression [None]
  - Automatism [None]
  - Panic reaction [None]
  - Adverse drug reaction [None]

NARRATIVE: CASE EVENT DATE: 20220515
